FAERS Safety Report 19113650 (Version 1)
Quarter: 2021Q2

REPORT INFORMATION
  Report Type: Spontaneous
  Country: CZ (occurrence: CZ)
  Receive Date: 20210409
  Receipt Date: 20210409
  Transmission Date: 20210717
  Serious: Yes (Hospitalization, Other)
  Sender: FDA-Public Use
  Company Number: CZ-TEVA-2021-CZ-1898853

PATIENT
  Age: 74 Year
  Sex: Male

DRUGS (3)
  1. PEMETREXED. [Suspect]
     Active Substance: PEMETREXED
     Indication: LUNG ADENOCARCINOMA
     Dosage: 500 MG/M2, 3?WEEKS CYCLES, 8 CYCLES TOTAL
     Route: 042
     Dates: start: 201612, end: 201705
  2. LOZAP [Concomitant]
     Dosage: 50 MILLIGRAM DAILY; 1?0?0 THE ENTIRE TIME
  3. CISPLATIN. [Suspect]
     Active Substance: CISPLATIN
     Indication: LUNG ADENOCARCINOMA
     Dosage: 75 MG/M2, 3?WEEKS CYCLES, 4 CYCLES TOTAL
     Route: 042
     Dates: start: 201612, end: 201702

REACTIONS (1)
  - Haematotoxicity [Unknown]
